FAERS Safety Report 8270875-7 (Version None)
Quarter: 2012Q2

REPORT INFORMATION
  Report Type: 
  Country: None (occurrence: None)
  Receive Date: 20120410
  Receipt Date: 20120410
  Transmission Date: 20120825
  Serious: Yes (Hospitalization)
  Sender: FDA-Public Use
  Company Number: None

PATIENT
  Age: 86 Year
  Sex: Female
  Weight: 58 kg

DRUGS (15)
  1. DILTIAZEM [Concomitant]
     Route: 048
  2. FUROSEMIDE [Concomitant]
     Route: 048
  3. CALCIUM CARBONATE [Concomitant]
     Route: 048
  4. ASPIRIN [Concomitant]
     Route: 048
  5. FUROSEMIDE [Concomitant]
     Route: 048
  6. OXYCODONE HCL EXTENDED-RELEASE [Suspect]
     Indication: PAIN
     Dosage: 10 MG
     Route: 048
  7. ATORVASTATIN [Concomitant]
     Route: 048
  8. MULTI-VITAMIN [Concomitant]
     Route: 048
  9. WARFARIN SODIUM [Concomitant]
     Route: 048
  10. METOPROLOL TARTRATE [Concomitant]
     Route: 048
  11. ALENDRONATE SODIUM [Concomitant]
     Route: 048
  12. POTASSIUM CHLORIDE [Concomitant]
     Route: 048
  13. FAMOTIDINE [Concomitant]
     Route: 048
  14. MAGNESIUM LACTATE [Concomitant]
     Route: 048
  15. DOCUSATE SODIUM [Concomitant]
     Route: 048

REACTIONS (5)
  - HYPOXIA [None]
  - LETHARGY [None]
  - AGITATION [None]
  - RENAL FAILURE ACUTE [None]
  - MENTAL STATUS CHANGES [None]
